FAERS Safety Report 23227501 (Version 1)
Quarter: 2023Q4

REPORT INFORMATION
  Report Type: Report from Study
  Country: US (occurrence: US)
  Receive Date: 20231124
  Receipt Date: 20231124
  Transmission Date: 20240110
  Serious: No
  Sender: FDA-Public Use
  Company Number: US-AstraZeneca-CH-00514025A

PATIENT
  Sex: Female

DRUGS (2)
  1. STRENSIQ [Suspect]
     Active Substance: ASFOTASE ALFA
     Indication: Hypophosphatasia
     Dosage: UNK
     Route: 065
  2. STRENSIQ [Suspect]
     Active Substance: ASFOTASE ALFA
     Dosage: UNK

REACTIONS (11)
  - Off label use [Unknown]
  - Vitamin B6 increased [Unknown]
  - Joint injury [Recovering/Resolving]
  - Weight increased [Unknown]
  - Treatment noncompliance [Unknown]
  - Product administration error [Unknown]
  - Lipohypertrophy [Unknown]
  - Injection site pain [Unknown]
  - Injection site swelling [Recovered/Resolved]
  - Injection site erythema [Unknown]
  - Wrist fracture [Unknown]
